FAERS Safety Report 6480867-6 (Version None)
Quarter: 2009Q4

REPORT INFORMATION
  Report Type: 
  Country: None (occurrence: None)
  Receive Date: 20091208
  Receipt Date: 20091123
  Transmission Date: 20100525
  Serious: Yes (Death, Life-Threatening)
  Sender: FDA-Public Use
  Company Number: SE-CELGENEUS-150-21880-09120579

PATIENT
  Sex: Male
  Weight: 87 kg

DRUGS (9)
  1. REVLIMID [Suspect]
     Indication: MULTIPLE MYELOMA
     Route: 048
     Dates: start: 20090910, end: 20090924
  2. REVLIMID [Suspect]
     Route: 048
     Dates: start: 20090630
  3. CEPELOFOSAMID [Concomitant]
     Indication: DRUG USE FOR UNKNOWN INDICATION
     Route: 051
     Dates: start: 20090903, end: 20090903
  4. BETAPRED [Concomitant]
     Indication: DRUG USE FOR UNKNOWN INDICATION
     Route: 051
     Dates: start: 20090901, end: 20090904
  5. VELCADE [Concomitant]
     Indication: MULTIPLE MYELOMA
     Route: 065
     Dates: start: 20090630, end: 20090806
  6. PREDNISON [Concomitant]
     Indication: MULTIPLE MYELOMA
     Route: 048
     Dates: start: 20090102, end: 20090320
  7. PREDNISON [Concomitant]
     Route: 048
     Dates: start: 20090701, end: 20090701
  8. PREDNISON [Concomitant]
     Route: 051
     Dates: start: 20090702, end: 20090720
  9. PREDNISON [Concomitant]
     Route: 048
     Dates: start: 20090721, end: 20090816

REACTIONS (2)
  - DISEASE PROGRESSION [None]
  - GASTROINTESTINAL HAEMORRHAGE [None]
